FAERS Safety Report 9115468 (Version 2)
Quarter: 2013Q1

REPORT INFORMATION
  Report Type: Spontaneous
  Country: FR (occurrence: FR)
  Receive Date: 20130225
  Receipt Date: 20130311
  Transmission Date: 20140127
  Serious: Yes (Hospitalization)
  Sender: FDA-Public Use
  Company Number: PHHY2013FR018284

PATIENT
  Sex: Female

DRUGS (6)
  1. COMTAN [Suspect]
     Indication: PARKINSON^S DISEASE
     Dosage: 200 MG, QID
     Route: 048
     Dates: start: 2011, end: 20121214
  2. STALEVO [Suspect]
     Indication: PARKINSON^S DISEASE
     Dosage: 1 DF, TID
     Route: 048
     Dates: start: 20121214, end: 20121231
  3. MODOPAR [Concomitant]
     Dosage: UNK, QID
     Route: 048
  4. SERESTA [Concomitant]
     Dosage: 50 MG, DAILY
     Route: 048
  5. DOLIPRANE [Concomitant]
     Dosage: 500 MG, TID
     Route: 048
  6. XARELTO [Concomitant]
     Dosage: 10 MG, DAILY
     Route: 048

REACTIONS (1)
  - Leukopenia [Recovered/Resolved]
